FAERS Safety Report 5644790-9 (Version None)
Quarter: 2008Q1

REPORT INFORMATION
  Report Type: 
  Country: None (occurrence: None)
  Receive Date: 20080229
  Receipt Date: 20070817
  Transmission Date: 20080703
  Serious: No
  Sender: FDA-Public Use
  Company Number: A0668374A

PATIENT
  Age: 60 Year
  Sex: Female
  Weight: 47.7 kg

DRUGS (1)
  1. VALTREX [Suspect]
     Dosage: 1G THREE TIMES PER DAY
     Route: 048

REACTIONS (2)
  - HEADACHE [None]
  - OVERDOSE [None]
